FAERS Safety Report 11749319 (Version 14)
Quarter: 2017Q2

REPORT INFORMATION
  Report Type: Report from Study
  Country: CA (occurrence: CA)
  Receive Date: 20151118
  Receipt Date: 20170630
  Transmission Date: 20170829
  Serious: Yes (Death, Life-Threatening, Hospitalization)
  Sender: FDA-Public Use
  Company Number: PHHY2015CA108556

PATIENT
  Age: 82 Year
  Sex: Female

DRUGS (2)
  1. SANDOSTATIN LAR DEPOT [Suspect]
     Active Substance: OCTREOTIDE ACETATE
     Indication: ANGIODYSPLASIA
     Dosage: 20 MG, QMO
     Route: 030
     Dates: start: 20150910
  2. SANDOSTATIN [Suspect]
     Active Substance: OCTREOTIDE ACETATE
     Indication: ANGIODYSPLASIA
     Dosage: 100 UG, BID
     Route: 058
     Dates: start: 20150724

REACTIONS (18)
  - Anaemia [Unknown]
  - Death [Fatal]
  - Viral upper respiratory tract infection [Unknown]
  - Diarrhoea [Unknown]
  - Epistaxis [Unknown]
  - Pain in extremity [Unknown]
  - Eating disorder [Unknown]
  - Suicidal ideation [Unknown]
  - Dementia [Unknown]
  - Cardiac disorder [Unknown]
  - Neuralgia [Unknown]
  - Fall [Unknown]
  - Malaise [Unknown]
  - Gait disturbance [Unknown]
  - Delirium [Unknown]
  - Syncope [Unknown]
  - Cognitive disorder [Unknown]
  - Product use in unapproved indication [Unknown]

NARRATIVE: CASE EVENT DATE: 2015
